FAERS Safety Report 7892913-3 (Version None)
Quarter: 2011Q4

REPORT INFORMATION
  Report Type: 
  Country: None (occurrence: None)
  Receive Date: 20111104
  Receipt Date: 20111026
  Transmission Date: 20120403
  Serious: Yes (Other)
  Sender: FDA-Public Use
  Company Number: US-BRISTOL-MYERS SQUIBB COMPANY-16197212

PATIENT
  Sex: Male
  Weight: 77 kg

DRUGS (2)
  1. PRADAXA [Concomitant]
  2. WARFARIN SODIUM [Suspect]
     Indication: THROMBOSIS

REACTIONS (2)
  - ATRIAL FLUTTER [None]
  - ATRIAL FIBRILLATION [None]
